FAERS Safety Report 9981951 (Version 1)
Quarter: 2014Q1

REPORT INFORMATION
  Report Type: Report from Study
  Country: US (occurrence: US)
  Receive Date: 20140307
  Receipt Date: 20140307
  Transmission Date: 20141002
  Serious: No
  Sender: FDA-Public Use
  Company Number: US-ABBVIE-13P-163-1178678-00

PATIENT
  Age: 31 Year
  Sex: Male
  Weight: 77.18 kg

DRUGS (4)
  1. HUMIRA [Suspect]
     Indication: CROHN^S DISEASE
     Dates: start: 201005, end: 201005
  2. HUMIRA [Suspect]
     Dates: start: 2010, end: 2010
  3. HUMIRA [Suspect]
     Route: 050
     Dates: start: 2010, end: 20131121
  4. TRAMADOL [Concomitant]
     Indication: CROHN^S DISEASE

REACTIONS (1)
  - Abdominal pain [Not Recovered/Not Resolved]
